FAERS Safety Report 19489246 (Version 2)
Quarter: 2021Q3

REPORT INFORMATION
  Report Type: Report from Study
  Country: BR (occurrence: BR)
  Receive Date: 20210703
  Receipt Date: 20210815
  Transmission Date: 20211014
  Serious: Yes (Other)
  Sender: FDA-Public Use
  Company Number: NVSC2021BR018518

PATIENT
  Age: 31 Year
  Sex: Female

DRUGS (3)
  1. COSENTYX [Suspect]
     Active Substance: SECUKINUMAB
     Dosage: UNK(0,1,2,3,4 AFTER THAT EVERY 4 MONTHS)
     Route: 065
  2. COSENTYX [Suspect]
     Active Substance: SECUKINUMAB
     Indication: PSORIASIS
     Dosage: 300 MG, UNKNOWN
     Route: 065
     Dates: start: 20200101
  3. COSENTYX [Suspect]
     Active Substance: SECUKINUMAB
     Dosage: UNK
     Route: 065
     Dates: start: 20200711

REACTIONS (8)
  - Incision site inflammation [Recovering/Resolving]
  - Maternal exposure during pregnancy [Recovered/Resolved]
  - Scar [Unknown]
  - Postpartum haemorrhage [Unknown]
  - Immune system disorder [Unknown]
  - Postoperative wound infection [Recovering/Resolving]
  - Normal newborn [Unknown]
  - Suppressed lactation [Unknown]

NARRATIVE: CASE EVENT DATE: 202008
